FAERS Safety Report 6650099-7 (Version None)
Quarter: 2010Q1

REPORT INFORMATION
  Report Type: 
  Country: None (occurrence: None)
  Receive Date: 20100325
  Receipt Date: 20091202
  Transmission Date: 20100710
  Serious: No
  Sender: FDA-Public Use
  Company Number: US-KINGPHARMUSA00001-K200901510

PATIENT
  Sex: Female
  Weight: 72.562 kg

DRUGS (1)
  1. ALTACE [Suspect]
     Indication: HYPERTENSION
     Dosage: UNK, QD
     Dates: end: 20020417

REACTIONS (1)
  - DRUG INEFFECTIVE [None]
